FAERS Safety Report 4874803-3 (Version None)
Quarter: 2006Q1

REPORT INFORMATION
  Report Type: 
  Country: None (occurrence: None)
  Receive Date: 20060104
  Receipt Date: 20060104
  Transmission Date: 20060701
  Serious: Yes (Hospitalization, Other)
  Sender: FDA-Public Use
  Company Number: None

PATIENT
  Sex: Female
  Weight: 53 kg

DRUGS (5)
  1. BUSULFAN [Suspect]
     Indication: ACUTE MYELOID LEUKAEMIA
     Dosage: SEE IMAGE
     Dates: start: 20051129, end: 20051202
  2. BUSULFAN [Suspect]
     Indication: ACUTE MYELOID LEUKAEMIA
     Dosage: SEE IMAGE
     Dates: start: 20051128
  3. CYCLOPHOSPHAMIDE [Suspect]
     Dosage: SEE IMAGE
     Dates: start: 20051203, end: 20051206
  4. CYCLOSPORINE [Suspect]
     Dosage: SEE IMAGE
     Dates: start: 20051207
  5. METHOTREXATE [Suspect]
     Dosage: SEE IMAGE
     Dates: start: 20051201, end: 20051203

REACTIONS (13)
  - ABDOMINAL PAIN UPPER [None]
  - CAPILLARY LEAK SYNDROME [None]
  - COMPLICATIONS OF TRANSPLANT SURGERY [None]
  - DIALYSIS [None]
  - HYPERBILIRUBINAEMIA [None]
  - HYPOVOLAEMIA [None]
  - MULTI-ORGAN DISORDER [None]
  - PULMONARY OEDEMA [None]
  - RENAL FAILURE [None]
  - RESPIRATORY DISORDER [None]
  - URINE OUTPUT DECREASED [None]
  - VENOOCCLUSIVE DISEASE [None]
  - WEIGHT INCREASED [None]
